FAERS Safety Report 9947611 (Version 1)
Quarter: 2014Q1

REPORT INFORMATION
  Report Type: Report from Study
  Country: US (occurrence: US)
  Receive Date: 20140303
  Receipt Date: 20140303
  Transmission Date: 20141002
  Serious: No
  Sender: FDA-Public Use
  Company Number: US-ABBVIE-13P-163-1055979-00

PATIENT
  Age: 22 Year
  Sex: Female
  Weight: 65.83 kg

DRUGS (3)
  1. HUMIRA [Suspect]
     Indication: POLYARTHRITIS
     Dates: start: 2011
  2. BIRTH CONTROL [Concomitant]
     Indication: CONTRACEPTION
  3. VITAMIN D [Concomitant]
     Indication: VITAMIN D DEFICIENCY

REACTIONS (1)
  - Lymphadenopathy [Not Recovered/Not Resolved]
